FAERS Safety Report 23064430 (Version 3)
Quarter: 2023Q4

REPORT INFORMATION
  Report Type: Spontaneous
  Country: IT (occurrence: IT)
  Receive Date: 20231013
  Receipt Date: 20231030
  Transmission Date: 20240109
  Serious: Yes (Other)
  Sender: FDA-Public Use
  Company Number: None

PATIENT
  Age: 83 Year
  Sex: Male
  Weight: 51 kg

DRUGS (3)
  1. CETUXIMAB [Suspect]
     Active Substance: CETUXIMAB
     Indication: Colon cancer metastatic
     Dosage: 600 MG, WEEKLY (1/W)
     Route: 042
     Dates: start: 20230621
  2. OXALIPLATIN [Suspect]
     Active Substance: OXALIPLATIN
     Indication: Colon cancer metastatic
     Dosage: 130 MG, OTHER (CYCLE I - THERAPY START 21 JUN 2023 - XELOX SCHEME EVERY 21 DAYS)
     Route: 042
     Dates: start: 20230621, end: 20230621
  3. CAPECITABINE [Suspect]
     Active Substance: CAPECITABINE
     Indication: Colon cancer metastatic
     Dosage: 500 MG, UNKNOWN ( EVERY 3 WEEK)
     Route: 048
     Dates: start: 20230621, end: 20230704

REACTIONS (1)
  - Thrombocytopenia [Recovering/Resolving]

NARRATIVE: CASE EVENT DATE: 20230626
